FAERS Safety Report 6634246-9 (Version None)
Quarter: 2010Q1

REPORT INFORMATION
  Report Type: 
  Country: None (occurrence: None)
  Receive Date: 20100315
  Receipt Date: 20100303
  Transmission Date: 20100710
  Serious: Yes (Other)
  Sender: FDA-Public Use
  Company Number: PHHY2010CA05300

PATIENT
  Sex: Female

DRUGS (2)
  1. EXJADE [Suspect]
     Dosage: 300 MG, UNK
     Route: 048
  2. EXJADE [Suspect]
     Dosage: 500 MG, QD
     Route: 048

REACTIONS (4)
  - ABDOMINAL PAIN [None]
  - BACK PAIN [None]
  - FREQUENT BOWEL MOVEMENTS [None]
  - RESPIRATORY DISORDER [None]
